FAERS Safety Report 5893099-7 (Version None)
Quarter: 2008Q3

REPORT INFORMATION
  Report Type: 
  Country: None (occurrence: None)
  Receive Date: 20080919
  Receipt Date: 20080909
  Transmission Date: 20090109
  Serious: Yes (Hospitalization)
  Sender: FDA-Public Use
  Company Number: A-CH2008-21854

PATIENT
  Age: 80 Year
  Sex: Male

DRUGS (1)
  1. TRACLEER [Suspect]
     Indication: PULMONARY ARTERIAL HYPERTENSION
     Dosage: ORAL
     Route: 048
     Dates: start: 20071001, end: 20080201

REACTIONS (4)
  - BILE DUCT CANCER [None]
  - DYSPEPSIA [None]
  - OEDEMA PERIPHERAL [None]
  - PYREXIA [None]
